FAERS Safety Report 23913714 (Version 1)
Quarter: 2024Q2

REPORT INFORMATION
  Report Type: Spontaneous
  Country: CA (occurrence: CA)
  Receive Date: 20240529
  Receipt Date: 20240529
  Transmission Date: 20240716
  Serious: Yes (Other)
  Sender: FDA-Public Use
  Company Number: CA-ORGANON-O2405CAN002328

PATIENT
  Age: 18 Year
  Sex: Female

DRUGS (2)
  1. REMERON [Suspect]
     Active Substance: MIRTAZAPINE
     Indication: Depression
     Dosage: 45.0 MILLIGRAM, QD (1 EVERY 1 DAYS)
     Route: 065
  2. REMERON [Suspect]
     Active Substance: MIRTAZAPINE
     Dosage: 30.0 MILLIGRAM, QD (1 EVERY 1 DAY)
     Route: 065

REACTIONS (3)
  - Intracranial pressure increased [Recovered/Resolved]
  - Optic disc haemorrhage [Recovered/Resolved]
  - Papilloedema [Recovered/Resolved]
